FAERS Safety Report 22059871 (Version 1)
Quarter: 2023Q1

REPORT INFORMATION
  Report Type: Spontaneous
  Country: US (occurrence: None)
  Receive Date: 20230302
  Receipt Date: 20230302
  Transmission Date: 20230417
  Serious: Yes (Life-Threatening)
  Sender: FDA-Public Use
  Company Number: None

PATIENT
  Age: 70 Year
  Sex: Female
  Weight: 75.7 kg

DRUGS (4)
  1. SOTALOL [Suspect]
     Active Substance: SOTALOL
     Indication: Atrial fibrillation
     Dosage: FREQUENCY : TWICE A DAY;?
     Route: 048
     Dates: start: 20230222, end: 20230225
  2. metoprolol 50 mg PO BID [Concomitant]
     Dates: start: 20230221
  3. furosemide 20 mg IV q24h [Concomitant]
     Dates: start: 20230221, end: 20230225
  4. apixaban 5 mg PO BID [Concomitant]
     Dates: start: 20230221

REACTIONS (4)
  - Electrocardiogram QT prolonged [None]
  - Condition aggravated [None]
  - Cardiac arrest [None]
  - Torsade de pointes [None]

NARRATIVE: CASE EVENT DATE: 20230226
